FAERS Safety Report 8449763-9 (Version None)
Quarter: 2012Q2

REPORT INFORMATION
  Report Type: 
  Country: None (occurrence: None)
  Receive Date: 20120620
  Receipt Date: 20120606
  Transmission Date: 20120825
  Serious: Yes (Hospitalization)
  Sender: FDA-Public Use
  Company Number: JP-VERTEX PHARMACEUTICALS INC.-AE-2012-006989

PATIENT
  Sex: Female

DRUGS (18)
  1. REBAMIPIDE [Concomitant]
  2. ADENOSINE [Concomitant]
  3. ISOSORBIDE DINITRATE [Concomitant]
  4. TATHION [Concomitant]
  5. OLOPATADINE HCL [Concomitant]
  6. MECOBALAMIN [Concomitant]
  7. EPEL [Concomitant]
  8. PEGASYS [Concomitant]
     Indication: HEPATITIS C
     Route: 051
     Dates: end: 20120511
  9. CLOBETASOL PROPIONATE [Concomitant]
  10. DIOVAN [Concomitant]
  11. MERISLON [Concomitant]
  12. VOLTAREN [Concomitant]
     Dates: start: 20120327
  13. RIBAVIRIN [Concomitant]
     Indication: HEPATITIS C
     Route: 048
     Dates: start: 20120313, end: 20120511
  14. EPINASTINE HYDROCHLORIDE [Concomitant]
  15. NEXIUM [Concomitant]
  16. XYZAL [Concomitant]
  17. VX-950 [Suspect]
     Indication: HEPATITIS C
     Route: 048
     Dates: start: 20120313, end: 20120511
  18. LOXONIN [Concomitant]
     Route: 048
     Dates: start: 20120330, end: 20120510

REACTIONS (7)
  - TACHYPNOEA [None]
  - DRUG ERUPTION [None]
  - PRURITUS [None]
  - FACE OEDEMA [None]
  - EYELID OEDEMA [None]
  - MALAISE [None]
  - BLOOD GLUCOSE INCREASED [None]
